FAERS Safety Report 8306979-X (Version None)
Quarter: 2012Q2

REPORT INFORMATION
  Report Type: 
  Country: None (occurrence: None)
  Receive Date: 20120424
  Receipt Date: 20120420
  Transmission Date: 20120825
  Serious: Yes (Death, Life-Threatening, Hospitalization, Other)
  Sender: FDA-Public Use
  Company Number: BR-BAYER-2011-004648

PATIENT
  Age: 73 Year
  Sex: Male
  Weight: 77 kg

DRUGS (34)
  1. SORAFENIB (RAF KINASE INHIBITOR) [Suspect]
     Dosage: 400 MG, QD
     Route: 048
     Dates: start: 20100924, end: 20100924
  2. TRAMADOL HYDROCHLORIDE [Concomitant]
     Indication: ABDOMINAL PAIN UPPER
     Dosage: 1 DF, UNK
     Dates: start: 20100908
  3. PLACEBO [Suspect]
     Dosage: 100 MG, QD
     Route: 048
     Dates: start: 20101206, end: 20101219
  4. PLACEBO [Suspect]
     Dosage: 100 MG, QD
     Route: 048
     Dates: start: 20110117, end: 20110206
  5. SORAFENIB (RAF KINASE INHIBITOR) [Suspect]
     Indication: HEPATIC NEOPLASM MALIGNANT
     Dosage: 400 MG, BID
     Route: 048
     Dates: start: 20100914, end: 20100923
  6. SORAFENIB (RAF KINASE INHIBITOR) [Suspect]
     Dosage: 400 MG, BID
     Route: 048
     Dates: start: 20101005, end: 20101010
  7. SORAFENIB (RAF KINASE INHIBITOR) [Suspect]
     Dosage: 400 MG, BID
     Route: 048
     Dates: start: 20110207, end: 20110227
  8. SORAFENIB (RAF KINASE INHIBITOR) [Suspect]
     Dosage: 400 MG, QD
     Route: 048
     Dates: start: 20110309, end: 20110309
  9. ULTRAVIST 150 [Concomitant]
     Indication: SCAN WITH CONTRAST
     Dosage: 1.5ML/KG
     Dates: start: 20100908
  10. PROPOFOL [Concomitant]
     Indication: SEDATIVE THERAPY
     Dosage: 200 MG, UNK
     Dates: start: 20110320, end: 20110320
  11. DIMETICONE [Concomitant]
     Indication: ABDOMINAL PAIN UPPER
     Dosage: 30 DROPS
     Dates: start: 20110411, end: 20110422
  12. PLACEBO [Suspect]
     Indication: HEPATIC NEOPLASM MALIGNANT
     Dosage: 150 MG, QD
     Route: 048
     Dates: start: 20100914, end: 20100924
  13. PLACEBO [Suspect]
     Dosage: 100 MG, QD
     Route: 048
     Dates: start: 20101220, end: 20110116
  14. SORAFENIB (RAF KINASE INHIBITOR) [Suspect]
     Dosage: 400 MG, QD
     Route: 048
     Dates: start: 20110117, end: 20110206
  15. SORAFENIB (RAF KINASE INHIBITOR) [Suspect]
     Dosage: 400 MG, QD
     Route: 048
     Dates: start: 20101116, end: 20101205
  16. RELIEV [Concomitant]
     Indication: DIAGNOSTIC PROCEDURE
     Dosage: 14 G, UNK
     Dates: start: 20100908
  17. NORFLOXACIN [Concomitant]
     Dosage: 400 MG, UNK
     Dates: start: 20110321
  18. NORFLOXACIN [Concomitant]
     Dosage: 400 MG, UNK
     Dates: start: 20110328, end: 20110328
  19. PLACEBO [Suspect]
     Dosage: 100 MG, QD
     Route: 048
     Dates: start: 20101116, end: 20101205
  20. PLACEBO [Suspect]
     Dosage: 100 MG, QD
     Route: 048
     Dates: start: 20110207, end: 20110228
  21. SORAFENIB (RAF KINASE INHIBITOR) [Suspect]
     Dosage: 400 MG, QD
     Route: 048
     Dates: start: 20101011, end: 20101024
  22. NORFLOXACIN [Concomitant]
     Dosage: 400 MG, UNK
     Dates: start: 20110325, end: 20110325
  23. SORAFENIB (RAF KINASE INHIBITOR) [Suspect]
     Dosage: 400 MG, QD
     Route: 048
     Dates: start: 20101206, end: 20101219
  24. SORAFENIB (RAF KINASE INHIBITOR) [Suspect]
     Dosage: 400 MG, QD
     Route: 048
     Dates: start: 20101220, end: 20110116
  25. PLACEBO [Suspect]
     Dosage: 0 UNK, UNK
     Route: 048
     Dates: start: 20100925, end: 20101004
  26. PLACEBO [Suspect]
     Dosage: 100 MG, QD
     Route: 048
     Dates: start: 20101005, end: 20101024
  27. PLACEBO [Suspect]
     Dosage: 100 MG, QD
     Route: 048
     Dates: start: 20101025, end: 20101115
  28. PLACEBO [Suspect]
     Dosage: 100 MG, QD
     Route: 048
     Dates: start: 20110301, end: 20110309
  29. LUFTAL [Concomitant]
     Indication: ABDOMINAL PAIN UPPER
     Dosage: 125MG - 375 MG PRN
     Dates: start: 20100909
  30. NORFLOXACIN [Concomitant]
     Indication: HAEMORRHAGE PROPHYLAXIS
     Dosage: 400 MG, UNK
     Dates: start: 20110319
  31. NORFLOXACIN [Concomitant]
     Dosage: 800 MG, UNK
     Dates: start: 20110322, end: 20110327
  32. SORAFENIB (RAF KINASE INHIBITOR) [Suspect]
     Dosage: 0
     Dates: start: 20100925, end: 20101004
  33. SORAFENIB (RAF KINASE INHIBITOR) [Suspect]
     Dosage: 400 MG, QD
     Route: 048
     Dates: start: 20101025, end: 20101115
  34. SORAFENIB (RAF KINASE INHIBITOR) [Suspect]
     Dosage: 400 MG, BID
     Route: 048
     Dates: start: 20110228, end: 20110308

REACTIONS (9)
  - LOWER GASTROINTESTINAL HAEMORRHAGE [None]
  - ENDOCARDITIS [None]
  - STAPHYLOCOCCAL INFECTION [None]
  - PNEUMONIA BACTERIAL [None]
  - INTERSTITIAL LUNG DISEASE [None]
  - ENTEROBACTER INFECTION [None]
  - HEPATIC FAILURE [None]
  - UPPER GASTROINTESTINAL HAEMORRHAGE [None]
  - HEPATIC ENCEPHALOPATHY [None]
